FAERS Safety Report 9850987 (Version 2)
Quarter: 2014Q1

REPORT INFORMATION
  Report Type: Spontaneous
  Country: US (occurrence: US)
  Receive Date: 20140128
  Receipt Date: 20140226
  Transmission Date: 20141002
  Serious: Yes (Death, Other)
  Sender: FDA-Public Use
  Company Number: US-GILEAD-2014-0092846

PATIENT
  Sex: Female

DRUGS (18)
  1. CAYSTON [Suspect]
     Indication: CYSTIC FIBROSIS
     Dosage: 75 MG, TID
     Route: 055
     Dates: start: 20100426, end: 20120509
  2. CAYSTON [Suspect]
     Indication: PSEUDOMONAS INFECTION
  3. ALBUTEROL                          /00139501/ [Concomitant]
     Dosage: UNK, Q4HRS PRN
  4. AZITHROMYCIN [Concomitant]
     Dosage: 250 MG, QD
  5. CALCIUM PLUS VITAMIN D [Concomitant]
     Dosage: UNK
  6. ZYRTEC [Concomitant]
     Dosage: 10 MG, QD
  7. DOXYCYCLINE [Concomitant]
     Dosage: 100 MG, BID
  8. ESOMEPRAZOLE [Concomitant]
     Dosage: 40 MG, QD
  9. NUVARING [Concomitant]
     Dosage: UNK, Q1MONTH
  10. CULTURELLE [Concomitant]
     Dosage: UNK, BID
  11. ONDANSETRON [Concomitant]
     Dosage: 4 MG, PRN
  12. ZENPEP [Concomitant]
     Dosage: 2-3 CAPSULES (DF), PRN
  13. MEPHYTON [Concomitant]
     Dosage: 5 MG, QD
  14. K-DUR [Concomitant]
     Dosage: 20 MEQ, QD
  15. PULMOZYME [Concomitant]
     Dosage: 2.5 MG, QD
  16. ZOLOFT [Concomitant]
     Dosage: 25 MG, QD
  17. HYPERTONIC SALINE SOLUTION [Concomitant]
     Dosage: UNK
  18. TOBI [Concomitant]
     Dosage: UNK

REACTIONS (1)
  - Cystic fibrosis [Fatal]
